FAERS Safety Report 25058702 (Version 1)
Quarter: 2025Q1

REPORT INFORMATION
  Report Type: Spontaneous
  Country: GB (occurrence: GB)
  Receive Date: 20250310
  Receipt Date: 20250310
  Transmission Date: 20250408
  Serious: Yes (Other)
  Sender: TEVA
  Company Number: GB-MHRA-EMIS-3050-094e06a3-4176-4628-9092-58f4c5176253

PATIENT
  Age: 65 Year
  Sex: Male
  Weight: 102 kg

DRUGS (3)
  1. AMLODIPINE [Suspect]
     Active Substance: AMLODIPINE BESYLATE
     Indication: Product used for unknown indication
     Dosage: ONE TO BE TAKEN EACH DAY, DAILY DOSE : 1 DOSAGE FORM DAILY
     Route: 065
     Dates: start: 20250127, end: 20250304
  2. RAMIPRIL [Concomitant]
     Active Substance: RAMIPRIL
     Indication: Product used for unknown indication
     Dosage: ONE TO BE TAKEN EACH DAY
     Route: 065
     Dates: start: 20250304
  3. DOXYCYCLINE [Concomitant]
     Active Substance: DOXYCYCLINE
     Indication: Product used for unknown indication
     Route: 065
     Dates: start: 20250217

REACTIONS (1)
  - Cutaneous vasculitis [Recovering/Resolving]
